FAERS Safety Report 14216733 (Version 2)
Quarter: 2017Q4

REPORT INFORMATION
  Report Type: Report from Study
  Country: IT (occurrence: IT)
  Receive Date: 20171122
  Receipt Date: 20171122
  Transmission Date: 20180321
  Serious: Yes (Other)
  Sender: FDA-Public Use
  Company Number: IT-PFIZER INC-2017495928

PATIENT
  Age: 77 Year
  Sex: Male

DRUGS (2)
  1. ZOLEDRONIC ACID [Suspect]
     Active Substance: ZOLEDRONIC ACID
     Indication: PROSTATE CANCER
     Dosage: 2 MG, ZOL AT DAY 1 FOLLOWED BY DTX AT DAY 2 EVERY 14 DAYS
     Route: 042
  2. TAXOTERE [Suspect]
     Active Substance: DOCETAXEL
     Indication: PROSTATE CANCER
     Dosage: 50 MG/M2, ZOL AT DAY 1 FOLLOWED BY DTX AT DAY 2 EVERY 14 DAYS
     Route: 042

REACTIONS (1)
  - Thrombophlebitis [Unknown]
